FAERS Safety Report 9573772 (Version 2)
Quarter: 2013Q4

REPORT INFORMATION
  Report Type: Spontaneous
  Country: SE (occurrence: SE)
  Receive Date: 20131001
  Receipt Date: 20131009
  Transmission Date: 20140711
  Serious: Yes (Disabling, Other)
  Sender: FDA-Public Use
  Company Number: SE-PFIZER INC-2013277793

PATIENT
  Age: 73 Year
  Sex: Male

DRUGS (1)
  1. CAVERJECT DUAL [Suspect]
     Dosage: 10 UG, AS NEEDED
     Dates: start: 200905, end: 201209

REACTIONS (8)
  - Cerebrovascular accident [Recovered/Resolved]
  - Eye haemorrhage [Recovered/Resolved with Sequelae]
  - Eye haemorrhage [Unknown]
  - Visual acuity reduced [Unknown]
  - Myositis [Recovered/Resolved]
  - Pruritus [Unknown]
  - Paraesthesia [Unknown]
  - Hypertension [Recovered/Resolved]
